FAERS Safety Report 9658440 (Version 1)
Quarter: 2013Q4

REPORT INFORMATION
  Report Type: Spontaneous
  Country: US (occurrence: US)
  Receive Date: 20131030
  Receipt Date: 20131030
  Transmission Date: 20140711
  Serious: No
  Sender: FDA-Public Use
  Company Number: US-PURDUE-USA-2012-0083920

PATIENT
  Sex: Female

DRUGS (4)
  1. OXYCONTIN (NDA 22-272) [Suspect]
     Indication: PAIN
     Dosage: 10 MG, Q12H
     Dates: start: 20120312, end: 20120312
  2. OXYCODONE                          /00045603/ [Concomitant]
     Indication: BREAKTHROUGH PAIN
     Dosage: 20 MG, Q4H PRN
     Route: 048
     Dates: start: 20120312, end: 20120312
  3. ZYRTEC [Concomitant]
     Indication: RASH
     Dosage: UNK
     Route: 048
     Dates: start: 20120313
  4. ZYRTEC [Concomitant]
     Indication: PRURITUS

REACTIONS (3)
  - Rash generalised [Recovered/Resolved]
  - Pruritus generalised [Recovered/Resolved]
  - Erythema [Recovered/Resolved]
